FAERS Safety Report 19282259 (Version 1)
Quarter: 2021Q2

REPORT INFORMATION
  Report Type: Spontaneous
  Country: JP (occurrence: JP)
  Receive Date: 20210520
  Receipt Date: 20210520
  Transmission Date: 20210717
  Serious: Yes (Hospitalization)
  Sender: FDA-Public Use
  Company Number: JP-DSJP-DSJ-2021-101541

PATIENT
  Age: 68 Year
  Sex: Male

DRUGS (2)
  1. ENHERTU [Suspect]
     Active Substance: FAM-TRASTUZUMAB DERUXTECAN-NXKI
     Indication: GASTRIC CANCER
     Dosage: 6.4 MG/KG, ONCE EVERY 3 WK
     Route: 041
     Dates: start: 20210114, end: 20210330
  2. ALOXI [Suspect]
     Active Substance: PALONOSETRON HYDROCHLORIDE
     Dosage: UNK
     Route: 065
     Dates: start: 20210114

REACTIONS (4)
  - Cellulitis [Recovering/Resolving]
  - Oesophageal candidiasis [Recovering/Resolving]
  - Anal abscess [Recovering/Resolving]
  - Constipation [Recovered/Resolved]
